FAERS Safety Report 11110921 (Version 1)
Quarter: 2015Q2

REPORT INFORMATION
  Report Type: Spontaneous
  Country: US (occurrence: US)
  Receive Date: 20150513
  Receipt Date: 20150513
  Transmission Date: 20150821
  Serious: Yes (Other)
  Sender: FDA-Public Use
  Company Number: US-BAYER-2015-218159

PATIENT
  Sex: Male
  Weight: 1.24 kg

DRUGS (4)
  1. MAGNESIUM HYDROXIDE. [Suspect]
     Active Substance: MAGNESIUM HYDROXIDE
     Indication: NERVOUS SYSTEM DISORDER
     Route: 064
  2. BETAMETHASONE [Concomitant]
     Active Substance: BETAMETHASONE
     Indication: NERVOUS SYSTEM DISORDER
     Route: 064
  3. BETAMETHASONE [Concomitant]
     Active Substance: BETAMETHASONE
     Indication: NERVOUS SYSTEM DISORDER
     Route: 064
  4. MAGNESIUM HYDROXIDE. [Suspect]
     Active Substance: MAGNESIUM HYDROXIDE
     Indication: NERVOUS SYSTEM DISORDER
     Route: 064

REACTIONS (3)
  - Low birth weight baby [None]
  - Foetal exposure timing unspecified [None]
  - Premature baby [None]
